FAERS Safety Report 19631505 (Version 1)
Quarter: 2021Q3

REPORT INFORMATION
  Report Type: Spontaneous
  Country: US (occurrence: US)
  Receive Date: 20210728
  Receipt Date: 20210728
  Transmission Date: 20211014
  Serious: No
  Sender: FDA-Public Use
  Company Number: US-ROCHE-2638852

PATIENT
  Age: 49 Year
  Sex: Female

DRUGS (1)
  1. XELODA [Suspect]
     Active Substance: CAPECITABINE
     Indication: PRODUCT USED FOR UNKNOWN INDICATION
     Route: 048
     Dates: start: 20200601

REACTIONS (11)
  - Musculoskeletal chest pain [Recovered/Resolved]
  - Dysgeusia [Unknown]
  - Skin ulcer [Unknown]
  - Hypoaesthesia [Unknown]
  - Temperature intolerance [Unknown]
  - Platelet count decreased [Unknown]
  - Abdominal distension [Recovered/Resolved]
  - Increased tendency to bruise [Unknown]
  - Liver function test increased [Unknown]
  - Alopecia [Unknown]
  - White blood cell count decreased [Unknown]

NARRATIVE: CASE EVENT DATE: 20200621
